FAERS Safety Report 21492026 (Version 5)
Quarter: 2022Q4

REPORT INFORMATION
  Report Type: Spontaneous
  Country: JP (occurrence: JP)
  Receive Date: 20221021
  Receipt Date: 20221222
  Transmission Date: 20230113
  Serious: Yes (Life-Threatening, Other)
  Sender: FDA-Public Use
  Company Number: JP-GSK-JP2022JPN149895

PATIENT

DRUGS (9)
  1. NUCALA [Suspect]
     Active Substance: MEPOLIZUMAB
     Indication: Eosinophilic granulomatosis with polyangiitis
     Dosage: 300 MG EVERY 4 WEEKS
     Route: 058
     Dates: start: 20210803, end: 20220930
  2. PREDONINE TABLET (PREDNISOLONE) [Concomitant]
     Indication: Eosinophilic granulomatosis with polyangiitis
     Dosage: 30 MG, 1D
     Route: 048
     Dates: start: 20210625
  3. PREDONINE TABLET (PREDNISOLONE) [Concomitant]
     Indication: Condition aggravated
     Dosage: 8.0 MG, 1D
     Route: 048
     Dates: end: 20220715
  4. PREDONINE TABLET (PREDNISOLONE) [Concomitant]
     Dosage: 7.0 MG, 1D
     Route: 048
     Dates: start: 20220716, end: 20221019
  5. PREDONINE TABLET (PREDNISOLONE) [Concomitant]
     Dosage: 35 MG, 1D
     Route: 048
     Dates: start: 20221020
  6. METHYLPREDNISOLONE [Concomitant]
     Active Substance: METHYLPREDNISOLONE
     Indication: Eosinophilic granulomatosis with polyangiitis
     Dosage: 500 MG
     Dates: start: 20210707, end: 20210709
  7. METHYLPREDNISOLONE [Concomitant]
     Active Substance: METHYLPREDNISOLONE
     Indication: Condition aggravated
     Dosage: 500 UNK
     Dates: start: 20221017, end: 20221019
  8. CYCLOPHOSPHAMIDE IV [Concomitant]
     Indication: Eosinophilic granulomatosis with polyangiitis
     Dosage: 400 MG
     Route: 042
     Dates: start: 20210712, end: 20210712
  9. CYCLOPHOSPHAMIDE IV [Concomitant]
     Indication: Condition aggravated
     Dosage: 250 UNK
     Dates: start: 20221101, end: 20221101

REACTIONS (4)
  - Eosinophilic granulomatosis with polyangiitis [Recovered/Resolved]
  - Condition aggravated [Recovered/Resolved]
  - Pulmonary alveolar haemorrhage [Recovered/Resolved]
  - Therapeutic product effect incomplete [Unknown]

NARRATIVE: CASE EVENT DATE: 20221011
